FAERS Safety Report 15933128 (Version 1)
Quarter: 2019Q1

REPORT INFORMATION
  Report Type: Spontaneous
  Country: CA (occurrence: CA)
  Receive Date: 20190207
  Receipt Date: 20190207
  Transmission Date: 20190417
  Serious: Yes (Other)
  Sender: FDA-Public Use
  Company Number: CA-PFIZER INC-2018292977

PATIENT
  Age: 58 Year
  Sex: Female
  Weight: 60.9 kg

DRUGS (10)
  1. PREDNISONE. [Concomitant]
     Active Substance: PREDNISONE
     Dosage: 15 MG, UNK
  2. INFLECTRA [Concomitant]
     Active Substance: INFLIXIMAB-DYYB
     Dosage: 300 MG,Q(EVERY) 0, 2, 6 WEEKS, THEN EVERY 8 WEEKS
     Route: 042
     Dates: start: 20190129
  3. XELJANZ [Suspect]
     Active Substance: TOFACITINIB CITRATE
     Indication: RHEUMATOID ARTHRITIS
     Dosage: 5 MG, 2X/DAY
     Route: 048
     Dates: start: 20180709
  4. METHOTREXATE. [Concomitant]
     Active Substance: METHOTREXATE
     Indication: RHEUMATOID ARTHRITIS
     Dosage: 20 MG, WEEKLY (ON WEDNESDAYS)
     Route: 048
     Dates: start: 2007
  5. XELJANZ [Suspect]
     Active Substance: TOFACITINIB CITRATE
     Dosage: UNK
     Route: 048
     Dates: start: 201808
  6. CORTEF [Concomitant]
     Active Substance: HYDROCORTISONE
     Dosage: 15 MG, DAILY
  7. INFLECTRA [Concomitant]
     Active Substance: INFLIXIMAB-DYYB
     Dosage: 300 MG,Q(EVERY) 0, 2, 6 WEEKS, THEN EVERY 8 WEEKS
     Route: 042
     Dates: start: 20181205
  8. ACETAMINOPHEN. [Concomitant]
     Active Substance: ACETAMINOPHEN
     Dosage: 1 G, UNK
     Route: 048
  9. TYLENOL [Concomitant]
     Active Substance: ACETAMINOPHEN
     Indication: ARTHRALGIA
     Dosage: UNK
  10. INFLECTRA [Concomitant]
     Active Substance: INFLIXIMAB-DYYB
     Indication: PSORIATIC ARTHROPATHY
     Dosage: 300 MG,Q(EVERY) 0, 2, 6 WEEKS, THEN EVERY 8 WEEKS
     Route: 042
     Dates: start: 20181024

REACTIONS (14)
  - Fatigue [Unknown]
  - Decreased appetite [Unknown]
  - Constipation [Unknown]
  - Drug effect incomplete [Unknown]
  - Headache [Unknown]
  - Dizziness [Unknown]
  - Blood pressure fluctuation [Unknown]
  - Fall [Unknown]
  - Drug ineffective [Unknown]
  - Nausea [Unknown]
  - Weight decreased [Unknown]
  - Disease recurrence [Unknown]
  - Paraesthesia [Unknown]
  - Gait disturbance [Recovering/Resolving]

NARRATIVE: CASE EVENT DATE: 2018
